FAERS Safety Report 23490630 (Version 1)
Quarter: 2024Q1

REPORT INFORMATION
  Report Type: Spontaneous
  Country: CN (occurrence: CN)
  Receive Date: 20240206
  Receipt Date: 20240206
  Transmission Date: 20240410
  Serious: Yes (Other)
  Sender: FDA-Public Use
  Company Number: CN-SHANGHAI JUNSHI BIOSCIENCES CO., LTD.-CN2024009249

PATIENT
  Age: 66 Year
  Sex: Male

DRUGS (6)
  1. TORIPALIMAB [Suspect]
     Active Substance: TORIPALIMAB
     Indication: Malignant melanoma
     Dosage: 240 MG(D1, D15), 28 DAYS AS A CYCLE
     Route: 041
     Dates: start: 20210816, end: 20211220
  2. TORIPALIMAB [Suspect]
     Active Substance: TORIPALIMAB
     Dosage: 240 MG(D1), 28 DAYS AS A CYCLE
     Route: 041
     Dates: start: 20220124, end: 20220124
  3. APATINIB [Suspect]
     Active Substance: APATINIB
     Indication: Malignant melanoma
     Dosage: 250 MG, QD? 28 DAYS AS A CYCLE
     Route: 048
     Dates: start: 20210816, end: 20211220
  4. APATINIB [Suspect]
     Active Substance: APATINIB
     Dosage: 250 MG, ONCE EVERY 3 DAYS? 28 DAYS AS A CYCLE
     Route: 048
     Dates: start: 20220124, end: 20220221
  5. TEMOZOLOMIDE [Concomitant]
     Active Substance: TEMOZOLOMIDE
     Indication: Malignant melanoma
     Dosage: 500 MG(D1), 400 MG/DAY (D2-D4), 28 DAYS AS A CYCLE
     Route: 048
     Dates: start: 20210816
  6. NIFEDIPINE [Concomitant]
     Active Substance: NIFEDIPINE
     Indication: Hypertension
     Dosage: UNK

REACTIONS (2)
  - Dermatitis exfoliative generalised [Recovering/Resolving]
  - Palmar-plantar erythrodysaesthesia syndrome [Recovering/Resolving]

NARRATIVE: CASE EVENT DATE: 20220221
